FAERS Safety Report 14783239 (Version 1)
Quarter: 2018Q2

REPORT INFORMATION
  Report Type: Spontaneous
  Country: IE (occurrence: IE)
  Receive Date: 20180420
  Receipt Date: 20180420
  Transmission Date: 20180711
  Serious: Yes (Other)
  Sender: FDA-Public Use
  Company Number: IE-PERRIGO-18IE003927

PATIENT
  Age: 14 Year
  Sex: Female

DRUGS (1)
  1. NAPROXEN. [Suspect]
     Active Substance: NAPROXEN
     Indication: PRODUCT USED FOR UNKNOWN INDICATION
     Dosage: UNKNOWN, UNKNOWN
     Route: 048

REACTIONS (4)
  - Acute kidney injury [Recovering/Resolving]
  - Laboratory test interference [Unknown]
  - Metabolic acidosis [Recovering/Resolving]
  - Encephalopathy [Recovering/Resolving]
